FAERS Safety Report 7451080-0 (Version None)
Quarter: 2011Q2

REPORT INFORMATION
  Report Type: 
  Country: None (occurrence: None)
  Receive Date: 20110502
  Receipt Date: 20110422
  Transmission Date: 20111010
  Serious: Yes (Death)
  Sender: FDA-Public Use
  Company Number: JP-ROCHE-773288

PATIENT
  Sex: Female

DRUGS (2)
  1. COPEGUS [Suspect]
     Route: 048
     Dates: start: 20091001, end: 20110201
  2. PEGASYS [Suspect]
     Dosage: FORM: INJECTION
     Route: 058
     Dates: start: 20091001, end: 20110408

REACTIONS (1)
  - CEREBRAL HAEMORRHAGE [None]
